FAERS Safety Report 25977340 (Version 2)
Quarter: 2025Q4

REPORT INFORMATION
  Report Type: Spontaneous
  Country: US (occurrence: US)
  Receive Date: 20251030
  Receipt Date: 20251110
  Transmission Date: 20260118
  Serious: No
  Sender: ELI LILLY AND COMPANY
  Company Number: US-ELI_LILLY_AND_COMPANY-US202510032260

PATIENT
  Age: 79 Year

DRUGS (1)
  1. FORTEO [Suspect]
     Active Substance: TERIPARATIDE
     Indication: Product used for unknown indication
     Dosage: 20 UG, UNKNOWN
     Route: 065

REACTIONS (6)
  - Cervical radiculopathy [Unknown]
  - Lumbar radiculopathy [Unknown]
  - Physical deconditioning [Unknown]
  - Depression [Unknown]
  - Pain [Unknown]
  - Asthenia [Unknown]
